FAERS Safety Report 24414750 (Version 2)
Quarter: 2025Q2

REPORT INFORMATION
  Report Type: Spontaneous
  Country: ES (occurrence: ES)
  Receive Date: 20241009
  Receipt Date: 20250521
  Transmission Date: 20250716
  Serious: Yes (Hospitalization, Disabling)
  Sender: AUROBINDO
  Company Number: ES-2024-ES-000024

PATIENT
  Age: 43 Year
  Sex: Male

DRUGS (2)
  1. OMEPRAZOLE [Suspect]
     Active Substance: OMEPRAZOLE
     Indication: Product used for unknown indication
     Route: 065
  2. LEVOTHYROXINE [Concomitant]
     Active Substance: LEVOTHYROXINE
     Indication: Product used for unknown indication
     Route: 065

REACTIONS (1)
  - Myopathy [Recovered/Resolved]
